FAERS Safety Report 13672686 (Version 1)
Quarter: 2017Q2

REPORT INFORMATION
  Report Type: Spontaneous
  Country: DE (occurrence: DE)
  Receive Date: 20170621
  Receipt Date: 20170621
  Transmission Date: 20170830
  Serious: Yes (Hospitalization)
  Sender: FDA-Public Use
  Company Number: DE-TORRENT-00006620

PATIENT
  Age: 89 Year
  Sex: Female

DRUGS (7)
  1. QUETIAPINE FUMARATE. [Interacting]
     Active Substance: QUETIAPINE FUMARATE
  2. RAMIPRIL. [Interacting]
     Active Substance: RAMIPRIL
  3. DULOXETINE/DULOXETINE HYDROCHLORIDE [Interacting]
     Active Substance: DULOXETINE HYDROCHLORIDE
  4. XIPAMIDE [Interacting]
     Active Substance: XIPAMIDE
  5. MIRTAZAPINE. [Suspect]
     Active Substance: MIRTAZAPINE
  6. PANTOPRAZOLE [Interacting]
     Active Substance: PANTOPRAZOLE
  7. OBSIDAN (PROPRANOLOL HYDROCHLORIDE) [Concomitant]
     Active Substance: PROPRANOLOL HYDROCHLORIDE

REACTIONS (5)
  - Asthenia [Recovered/Resolved]
  - Hyponatraemia [Recovered/Resolved]
  - Nausea [Recovered/Resolved]
  - Drug interaction [Unknown]
  - Malaise [Recovered/Resolved]

NARRATIVE: CASE EVENT DATE: 20161207
